FAERS Safety Report 5199632-5 (Version None)
Quarter: 2007Q1

REPORT INFORMATION
  Report Type: 
  Country: None (occurrence: None)
  Receive Date: 20070103
  Receipt Date: 20070103
  Transmission Date: 20070707
  Serious: Yes (Other)
  Sender: FDA-Public Use
  Company Number: None

PATIENT
  Sex: Female
  Weight: 67.1324 kg

DRUGS (2)
  1. HUMIRA [Suspect]
     Indication: RHEUMATOID ARTHRITIS
     Dosage: 40MG  Q 2 WEEKS  SQ
     Route: 058
     Dates: start: 20060501, end: 20061101
  2. METHOTREXATE [Concomitant]

REACTIONS (1)
  - BREAST CANCER [None]
